FAERS Safety Report 10056596 (Version 1)
Quarter: 2014Q2

REPORT INFORMATION
  Report Type: Spontaneous
  Country: US (occurrence: US)
  Receive Date: 20140403
  Receipt Date: 20140403
  Transmission Date: 20141212
  Serious: No
  Sender: FDA-Public Use
  Company Number: US-PFIZER INC-2014092853

PATIENT
  Age: 77 Year
  Sex: Male
  Weight: 78.01 kg

DRUGS (1)
  1. XANAX [Suspect]
     Indication: ANXIETY
     Dosage: 0.5 MG, 4X/DAY

REACTIONS (1)
  - Blood magnesium increased [Unknown]
